FAERS Safety Report 9393368 (Version 2)
Quarter: 2013Q3

REPORT INFORMATION
  Report Type: Spontaneous
  Country: US (occurrence: US)
  Receive Date: 20130710
  Receipt Date: 20130710
  Transmission Date: 20140515
  Serious: Yes (Hospitalization)
  Sender: FDA-Public Use
  Company Number: US-TEVA-413930USA

PATIENT
  Sex: Female
  Weight: 79.9 kg

DRUGS (16)
  1. KETOPROFEN [Suspect]
     Indication: PAIN
  2. LEFLUNOMIDE [Suspect]
     Dates: start: 201210, end: 201212
  3. IBUPROFEN [Suspect]
  4. ASPIRIN [Suspect]
     Dosage: 1 DOSAGE FORMS DAILY; UNKNOWN DOSE INCREASED UP TO 14 TABLETS/DAY
  5. CELECOXIB [Suspect]
     Dosage: 200 MILLIGRAM DAILY;
  6. METHOTREXATE [Suspect]
     Indication: PAIN
     Dosage: 3.5714 MG/ML DAILY;
     Dates: start: 201210, end: 201212
  7. INFLIXIMAB [Suspect]
  8. HYDROXYCHLOROQUINE [Suspect]
  9. PREDNISONE [Suspect]
     Indication: PAIN
     Dosage: 5 MILLIGRAM DAILY;
  10. PREDNISONE [Suspect]
     Dosage: 45 MILLIGRAM DAILY;
  11. FLUOXETINE HYDROCHLORIDE [Suspect]
     Dosage: 240 MILLIGRAM DAILY; DOSE REDUCED
  12. FLUOXETINE HYDROCHLORIDE [Suspect]
     Dosage: 120 MILLIGRAM DAILY;
  13. TRIAMCINOLONE ACETONIDE [Suspect]
     Indication: PAIN
  14. FOLIC ACID [Concomitant]
     Dosage: 1 MILLIGRAM DAILY;
  15. LEVOTHYROXINE [Concomitant]
     Indication: THYROID DISORDER
     Dosage: 75 MILLIGRAM DAILY;
  16. CORTISONE [Concomitant]

REACTIONS (23)
  - Tremor [Unknown]
  - Adverse event [Unknown]
  - Muscle spasms [Unknown]
  - Drug hypersensitivity [Unknown]
  - Renal disorder [Unknown]
  - Drug ineffective [Unknown]
  - Drug effect decreased [Unknown]
  - Feeling abnormal [Unknown]
  - Movement disorder [Unknown]
  - Swelling [Unknown]
  - Vision blurred [Unknown]
  - Blood glucose abnormal [Unknown]
  - Gastric disorder [Unknown]
  - Vomiting projectile [Unknown]
  - Gastrooesophageal reflux disease [Unknown]
  - Dyspepsia [Unknown]
  - Depression [Unknown]
  - Anxiety [Unknown]
  - Rash [Unknown]
  - Alopecia [Unknown]
  - Vitamin D deficiency [Unknown]
  - Magnesium deficiency [Unknown]
  - Bone density decreased [Unknown]
